FAERS Safety Report 21871403 (Version 1)
Quarter: 2023Q1

REPORT INFORMATION
  Report Type: Spontaneous
  Country: US (occurrence: None)
  Receive Date: 20230113
  Receipt Date: 20230113
  Transmission Date: 20230417
  Serious: Yes (Hospitalization)
  Sender: FDA-Public Use
  Company Number: None

PATIENT
  Sex: Female

DRUGS (15)
  1. HUMIRA [Suspect]
     Active Substance: ADALIMUMAB
     Indication: Colitis ulcerative
     Dosage: 80MG/0.8ML?INJECT 1 PEN UNDER THE SKIN (SUBCUTANEOUS INJECTION) EVERY 14 DAYS ?
     Route: 058
     Dates: start: 20211221
  2. HUMIRA [Suspect]
     Active Substance: ADALIMUMAB
     Dosage: OTHER QUANTITY : 1 PEN;?FREQUENCY : EVERY OTHER WEEK;?
     Route: 058
  3. ADAPALENE [Concomitant]
     Active Substance: ADAPALENE
  4. CLOBETASOL SOL [Concomitant]
  5. CYPROHEPTAD [Concomitant]
  6. FOLIC ACID [Concomitant]
     Active Substance: FOLIC ACID
  7. HYDROCORT CRE [Concomitant]
  8. HYDROCORTISO CRE [Concomitant]
  9. HYOSCYAMINE [Concomitant]
     Active Substance: HYOSCYAMINE
  10. MESALAMINE [Concomitant]
     Active Substance: MESALAMINE
  11. OMEPRAZOLE [Concomitant]
  12. ONDANSETRON [Concomitant]
  13. PANTOPRAZOLE [Concomitant]
     Active Substance: PANTOPRAZOLE
  14. PREDNISONE [Concomitant]
     Active Substance: PREDNISONE
  15. TRIAMCINOLON CRE [Concomitant]

REACTIONS (1)
  - Hospitalisation [None]
